FAERS Safety Report 5285941-8 (Version None)
Quarter: 2007Q2

REPORT INFORMATION
  Report Type: 
  Country: None (occurrence: None)
  Receive Date: 20070404
  Receipt Date: 20070327
  Transmission Date: 20071010
  Serious: Yes (Other)
  Sender: FDA-Public Use
  Company Number: PHBS2007JP02761

PATIENT

DRUGS (1)
  1. SANDOSTATIN LAR [Suspect]
     Indication: CARCINOID TUMOUR
     Route: 065

REACTIONS (3)
  - BLOOD THYROID STIMULATING HORMONE DECREASED [None]
  - HYPOTHYROIDISM [None]
  - PLEURAL EFFUSION [None]
